FAERS Safety Report 5496794-7 (Version None)
Quarter: 2007Q4

REPORT INFORMATION
  Report Type: 
  Country: None (occurrence: None)
  Receive Date: 20071025
  Receipt Date: 20070817
  Transmission Date: 20080405
  Serious: No
  Sender: FDA-Public Use
  Company Number: A0671264A

PATIENT
  Age: 80 Year
  Sex: Female

DRUGS (5)
  1. ADVAIR DISKUS 100/50 [Suspect]
     Indication: EMPHYSEMA
     Dosage: 1PUFF PER DAY
     Route: 055
     Dates: start: 20070401
  2. NEXIUM [Concomitant]
  3. ASPIRIN [Concomitant]
  4. PROCARDIA [Concomitant]
  5. STOOL SOFTENER [Concomitant]

REACTIONS (3)
  - DYSPHONIA [None]
  - ORAL PAIN [None]
  - WEIGHT INCREASED [None]
